FAERS Safety Report 16016231 (Version 2)
Quarter: 2019Q3

REPORT INFORMATION
  Report Type: Spontaneous
  Country: US (occurrence: US)
  Receive Date: 20190228
  Receipt Date: 20190807
  Transmission Date: 20191004
  Serious: No
  Sender: FDA-Public Use
  Company Number: US-BIOGEN-2019BI00701772

PATIENT
  Age: 43 Year
  Sex: Female

DRUGS (1)
  1. TYSABRI [Suspect]
     Active Substance: NATALIZUMAB
     Indication: MULTIPLE SCLEROSIS
     Route: 050
     Dates: start: 20180828

REACTIONS (6)
  - White blood cell count increased [Unknown]
  - Mean platelet volume increased [Unknown]
  - Autoimmune disorder [Unknown]
  - Haematocrit increased [Unknown]
  - Lymphocyte count increased [Unknown]
  - Addison^s disease [Unknown]

NARRATIVE: CASE EVENT DATE: 20181211
